FAERS Safety Report 5725139-X (Version None)
Quarter: 2008Q2

REPORT INFORMATION
  Report Type: 
  Country: None (occurrence: None)
  Receive Date: 20080501
  Receipt Date: 20080422
  Transmission Date: 20081010
  Serious: Yes (Other)
  Sender: FDA-Public Use
  Company Number: US-MERCK-0804USA00393

PATIENT
  Age: 13 Year
  Sex: Male

DRUGS (3)
  1. SINGULAIR [Suspect]
     Indication: ASTHMA
     Route: 048
     Dates: start: 20070401, end: 20070801
  2. PROAIR HFA [Concomitant]
     Route: 065
  3. ADVAIR HFA [Concomitant]
     Route: 065
     Dates: start: 20050101

REACTIONS (9)
  - DEPRESSION [None]
  - EMOTIONAL DISORDER [None]
  - EXTRAPYRAMIDAL DISORDER [None]
  - FEAR [None]
  - OVERDOSE [None]
  - PANIC ATTACK [None]
  - PERSONALITY CHANGE [None]
  - SOCIAL AVOIDANT BEHAVIOUR [None]
  - SUICIDAL BEHAVIOUR [None]
